FAERS Safety Report 23165928 (Version 2)
Quarter: 2024Q2

REPORT INFORMATION
  Report Type: Report from Study
  Country: EG (occurrence: EG)
  Receive Date: 20231109
  Receipt Date: 20240617
  Transmission Date: 20240716
  Serious: Yes (Other)
  Sender: FDA-Public Use
  Company Number: EG-002147023-NVSC2022EG069252

PATIENT
  Age: 58 Year
  Sex: Female

DRUGS (11)
  1. KISQALI [Suspect]
     Active Substance: RIBOCICLIB
     Indication: Breast cancer
     Dosage: 200 MG, FOR 3 WEEKS AND 1 WEEK OFF BUT THE FULL DOSE IS NOT REPORTED
     Route: 048
     Dates: start: 2020
  2. KISQALI [Suspect]
     Active Substance: RIBOCICLIB
     Dosage: 2 DOSAGE FORM (PER DAY FOR 3 WEEKS AND 1 WEEK OFF)
     Route: 048
     Dates: start: 202105
  3. KISQALI [Suspect]
     Active Substance: RIBOCICLIB
     Dosage: 3 DOSAGE FORM, QD (200 MG 3 TABLETS DAILY FOR 21 DAYS AND ONE FREE WEEK FOR THREE MONTHS)
     Route: 048
  4. KISQALI [Suspect]
     Active Substance: RIBOCICLIB
     Dosage: 200 MG
     Route: 048
     Dates: end: 202212
  5. FEMARA [Suspect]
     Active Substance: LETROZOLE
     Indication: Breast cancer metastatic
     Dosage: UNK
     Route: 048
  6. URSODIOL [Concomitant]
     Active Substance: URSODIOL
     Indication: Hepatic fibrosis
     Dosage: UNK
     Route: 048
     Dates: start: 202105
  7. LIVER ALBUMIN PLUS [Concomitant]
     Indication: Hepatic fibrosis
     Dosage: UNK
     Route: 065
     Dates: start: 202105
  8. CALCIUM [Concomitant]
     Active Substance: CALCIUM
     Indication: Bone disorder
     Dosage: UNK
     Route: 065
     Dates: start: 202105
  9. PENICILLAMINE [Concomitant]
     Active Substance: PENICILLAMINE
     Indication: Hepato-lenticular degeneration
     Dosage: UNK (MORE THAN 10 YEARS)
     Route: 065
  10. PANADOL [Concomitant]
     Active Substance: ACETAMINOPHEN
     Indication: Product used for unknown indication
     Dosage: UNK
     Route: 065
  11. UNSPECIFIED INGREDIENT [Concomitant]
     Active Substance: UNSPECIFIED INGREDIENT
     Indication: Product used for unknown indication
     Dosage: UNK
     Route: 065

REACTIONS (14)
  - Metastases to lung [Unknown]
  - Apathy [Recovering/Resolving]
  - Lethargy [Recovering/Resolving]
  - Body temperature increased [Recovering/Resolving]
  - Decreased immune responsiveness [Not Recovered/Not Resolved]
  - Swelling [Recovered/Resolved]
  - Splenomegaly [Recovering/Resolving]
  - Hypotension [Unknown]
  - Tumour marker increased [Unknown]
  - Fatigue [Recovering/Resolving]
  - Platelet count decreased [Recovering/Resolving]
  - Oedema peripheral [Recovered/Resolved]
  - Inflammation [Unknown]
  - Back pain [Unknown]

NARRATIVE: CASE EVENT DATE: 20210501
